FAERS Safety Report 15954962 (Version 2)
Quarter: 2019Q1

REPORT INFORMATION
  Report Type: Spontaneous
  Country: US (occurrence: US)
  Receive Date: 20190213
  Receipt Date: 20190222
  Transmission Date: 20190417
  Serious: Yes (Other)
  Sender: FDA-Public Use
  Company Number: US-ASTRAZENECA-2018SF13992

PATIENT
  Age: 74 Year
  Sex: Female

DRUGS (8)
  1. LORAZEPAM. [Concomitant]
     Active Substance: LORAZEPAM
  2. LEVOTHYROXINE. [Concomitant]
     Active Substance: LEVOTHYROXINE
  3. PREVACID [Suspect]
     Active Substance: LANSOPRAZOLE
     Route: 065
     Dates: start: 20120101, end: 20181231
  4. AMLODIPINE BESYLATE. [Concomitant]
     Active Substance: AMLODIPINE BESYLATE
  5. PRILOSEC [Suspect]
     Active Substance: OMEPRAZOLE MAGNESIUM
     Route: 048
     Dates: start: 20000101, end: 20111231
  6. FUROSEMIDE. [Concomitant]
     Active Substance: FUROSEMIDE
  7. VALSARTAN. [Concomitant]
     Active Substance: VALSARTAN
  8. LORAZEPAM. [Concomitant]
     Active Substance: LORAZEPAM

REACTIONS (4)
  - Chronic kidney disease [Unknown]
  - Acute kidney injury [Unknown]
  - Renal injury [Unknown]
  - Renal failure [Unknown]

NARRATIVE: CASE EVENT DATE: 2014
